FAERS Safety Report 5371389-4 (Version None)
Quarter: 2007Q2

REPORT INFORMATION
  Report Type: 
  Country: None (occurrence: None)
  Receive Date: 20070615
  Receipt Date: 20060509
  Transmission Date: 20071010
  Serious: Yes (Other)
  Sender: FDA-Public Use
  Company Number: 200614218US

PATIENT
  Age: 61 Year
  Sex: Male

DRUGS (6)
  1. LANTUS [Suspect]
     Indication: DIABETES MELLITUS NON-INSULIN-DEPENDENT
     Dosage: 10 IU
  2. OPTICLICK [Suspect]
     Indication: DIABETES MELLITUS NON-INSULIN-DEPENDENT
  3. METFORMIN HYDROCHLORIDE [Concomitant]
  4. AVANDIA [Concomitant]
  5. ATORVASTATIN CALCIUM (LIPITOR) [Concomitant]
  6. METOPROLOL SUCCINATE (TOPROL) [Concomitant]

REACTIONS (3)
  - HYPERGLYCAEMIA [None]
  - NERVOUSNESS [None]
  - VISION BLURRED [None]
